FAERS Safety Report 4432924-3 (Version None)
Quarter: 2004Q3

REPORT INFORMATION
  Report Type: 
  Country: None (occurrence: None)
  Receive Date: 20040823
  Receipt Date: 20040809
  Transmission Date: 20050211
  Serious: Yes (Hospitalization)
  Sender: FDA-Public Use
  Company Number: PERI00204002777

PATIENT
  Age: 73 Year
  Sex: Male

DRUGS (3)
  1. PROCAPTAN (PERINDOPRIL ERBUMINE) [Suspect]
     Indication: HYPERTENSION
     Dosage: 4 MG QD PO
     Route: 048
     Dates: start: 20040110, end: 20040726
  2. SINVACOR (SIMVASTATIN) [Concomitant]
  3. FINASTID (FINASTERIDE) [Suspect]

REACTIONS (2)
  - ALVEOLITIS [None]
  - LUNG DISORDER [None]
